FAERS Safety Report 21388881 (Version 1)
Quarter: 2022Q3

REPORT INFORMATION
  Report Type: Spontaneous
  Country: US (occurrence: None)
  Receive Date: 20220927
  Receipt Date: 20220927
  Transmission Date: 20221026
  Serious: Yes (Hospitalization)
  Sender: FDA-Public Use
  Company Number: None

PATIENT
  Age: 48 Year
  Sex: Male

DRUGS (5)
  1. ZELBORAF [Suspect]
     Active Substance: VEMURAFENIB
     Indication: Malignant melanoma
     Dosage: TAKE THREE TABLETS BY MOUTH EVERY 12 HOURS WITH OR WITHOUT FOOD.?
     Route: 048
     Dates: start: 20220730
  2. ALLOPURINOL [Concomitant]
     Active Substance: ALLOPURINOL
  3. COTELLIC TAB [Concomitant]
  4. LOSARTAN POT TAB [Concomitant]
  5. OXYCODONE TAB [Concomitant]

REACTIONS (2)
  - Pneumonia [None]
  - Therapy interrupted [None]

NARRATIVE: CASE EVENT DATE: 20220912
